FAERS Safety Report 5083956-6 (Version None)
Quarter: 2006Q3

REPORT INFORMATION
  Report Type: 
  Country: None (occurrence: None)
  Receive Date: 20060727
  Receipt Date: 20060421
  Transmission Date: 20061208
  Serious: Yes (Other)
  Sender: FDA-Public Use
  Company Number: 2006055528

PATIENT
  Age: 53 Year
  Sex: Female
  Weight: 99.7913 kg

DRUGS (8)
  1. LYRICA [Suspect]
     Indication: NEUROPATHY
     Dosage: 50 MG ( 50 MG, 1 IN 1 D) UNKNOWN
     Route: 065
     Dates: start: 20060419
  2. ZANTAC [Suspect]
     Indication: ABDOMINAL PAIN
     Dosage: 150 MG ( 75 MG, UNKNOWN ) UNKNOWN
     Route: 065
     Dates: start: 20060421
  3. ADVAIR DISKUS 100/50 [Concomitant]
  4. PREDNISONE TAB [Concomitant]
  5. OXYCONTIN [Concomitant]
  6. PERCOCET ( OXYCDONE HYDROCHLORIDE, PARACETAMOL) [Concomitant]
  7. STOOL SOFTENER ( DOCUSATE SODIUM) [Concomitant]
  8. XANAX [Concomitant]

REACTIONS (3)
  - ABDOMINAL PAIN [None]
  - DRUG INEFFECTIVE [None]
  - NAUSEA [None]
